FAERS Safety Report 16030605 (Version 2)
Quarter: 2019Q2

REPORT INFORMATION
  Report Type: Spontaneous
  Country: US (occurrence: US)
  Receive Date: 20190304
  Receipt Date: 20190410
  Transmission Date: 20190711
  Serious: No
  Sender: FDA-Public Use
  Company Number: US-PFIZER INC-2019077456

PATIENT
  Age: 71 Year
  Sex: Female
  Weight: 72.56 kg

DRUGS (2)
  1. PREMARIN [Suspect]
     Active Substance: ESTROGENS, CONJUGATED
     Indication: VAGINAL PROLAPSE
     Dosage: UNK (3 TIMES A WEEK)
     Route: 067
  2. PREMARIN [Suspect]
     Active Substance: ESTROGENS, CONJUGATED
     Indication: VULVOVAGINAL DRYNESS

REACTIONS (2)
  - Product use in unapproved indication [Unknown]
  - Breast tenderness [Unknown]
